FAERS Safety Report 10349663 (Version 1)
Quarter: 2014Q3

REPORT INFORMATION
  Report Type: Spontaneous
  Country: US (occurrence: None)
  Receive Date: 20140728
  Receipt Date: 20140728
  Transmission Date: 20150326
  Serious: Yes (Disabling)
  Sender: FDA-Public Use
  Company Number: None

PATIENT
  Age: 30 Year
  Sex: Male
  Weight: 74.84 kg

DRUGS (1)
  1. LEVOFLOXACIN [Suspect]
     Active Substance: LEVOFLOXACIN
     Indication: JAW DISORDER
     Dosage: 1 PILL ONCE DAILY TAKEN BY MOUTH
     Route: 048
     Dates: start: 20140707, end: 20140722

REACTIONS (14)
  - Malaise [None]
  - Headache [None]
  - Ocular hyperaemia [None]
  - Feeling abnormal [None]
  - Tendon injury [None]
  - Eyelid ptosis [None]
  - Pain [None]
  - Pyrexia [None]
  - Asthenia [None]
  - Confusional state [None]
  - Dizziness [None]
  - Hypoaesthesia [None]
  - Musculoskeletal pain [None]
  - Flushing [None]

NARRATIVE: CASE EVENT DATE: 20140722
